FAERS Safety Report 19954380 (Version 4)
Quarter: 2025Q1

REPORT INFORMATION
  Report Type: Report from Study
  Country: US (occurrence: US)
  Receive Date: 20211013
  Receipt Date: 20250228
  Transmission Date: 20250409
  Serious: Yes (Hospitalization, Other)
  Sender: TAKEDA
  Company Number: US-TAKEDA-US202033182

PATIENT
  Sex: Female

DRUGS (3)
  1. HUMAN IMMUNOGLOBULIN G [Suspect]
     Active Substance: HUMAN IMMUNOGLOBULIN G
     Indication: Immunodeficiency common variable
  2. HUMAN IMMUNOGLOBULIN G [Suspect]
     Active Substance: HUMAN IMMUNOGLOBULIN G
     Indication: Primary immunodeficiency syndrome
  3. HUMAN IMMUNOGLOBULIN G [Suspect]
     Active Substance: HUMAN IMMUNOGLOBULIN G
     Indication: Immunodeficiency common variable

REACTIONS (22)
  - Sepsis [Unknown]
  - Hepatic cirrhosis [Unknown]
  - Feeding disorder [Unknown]
  - Brain fog [Unknown]
  - Drug hypersensitivity [Unknown]
  - Abdominal discomfort [Unknown]
  - Malaise [Unknown]
  - Bronchitis [Unknown]
  - Nasopharyngitis [Unknown]
  - Illness [Unknown]
  - Tooth disorder [Unknown]
  - Device issue [Unknown]
  - Hepatomegaly [Unknown]
  - Splenomegaly [Unknown]
  - Product dose omission issue [Unknown]
  - Inappropriate schedule of product administration [Unknown]
  - Sinusitis [Unknown]
  - Heart rate increased [Unknown]
  - Anaemia [Unknown]
  - Asthenia [Unknown]
  - Pyrexia [Unknown]
  - Arthralgia [Unknown]
